FAERS Safety Report 5681082-6 (Version None)
Quarter: 2008Q1

REPORT INFORMATION
  Report Type: 
  Country: None (occurrence: None)
  Receive Date: 20080325
  Receipt Date: 20080317
  Transmission Date: 20080703
  Serious: Yes (Death, Hospitalization)
  Sender: FDA-Public Use
  Company Number: 056-C5013-07090239

PATIENT
  Age: 51 Year
  Sex: Female
  Weight: 40 kg

DRUGS (23)
  1. CC-5013 (LENALIDOMIDE) (CAPSULES) [Suspect]
     Indication: MULTIPLE MYELOMA
     Dosage: 10 MG, DAILY, ORAL
     Route: 048
     Dates: start: 20070709, end: 20070801
  2. CC-5013 (LENALIDOMIDE) (CAPSULES) [Suspect]
     Indication: MULTIPLE MYELOMA
     Dosage: 10 MG, DAILY, ORAL
     Route: 048
     Dates: start: 20070807, end: 20070819
  3. DEXAMETHASONE TAB [Suspect]
     Indication: MULTIPLE MYELOMA
     Dosage: 40 MG, DAILY, ORAL; DAYS 1-4, 9-12, 17-20
     Route: 048
     Dates: start: 20070704, end: 20070707
  4. DEXAMETHASONE TAB [Suspect]
     Indication: MULTIPLE MYELOMA
     Dosage: 40 MG, DAILY, ORAL; DAYS 1-4, 9-12, 17-20
     Route: 048
     Dates: start: 20070713, end: 20070717
  5. DEXAMETHASONE TAB [Suspect]
     Indication: MULTIPLE MYELOMA
     Dosage: 40 MG, DAILY, ORAL; DAYS 1-4, 9-12, 17-20
     Route: 048
     Dates: start: 20070810, end: 20070801
  6. DEXAMETHASONE TAB [Suspect]
     Indication: MULTIPLE MYELOMA
     Dosage: 40 MG, DAILY, ORAL; DAYS 1-4, 9-12, 17-20
     Route: 048
     Dates: start: 20070801, end: 20070805
  7. PHENOXYMETHYLPENICILLIN [Concomitant]
  8. ZOLOFT [Concomitant]
  9. DIANTALVIC (DI-GESIC) [Concomitant]
  10. ARANESP [Concomitant]
  11. ANTIBIOTICS (ANTIBIOTICS) [Concomitant]
  12. OXYGEN (OXYGEN) [Concomitant]
  13. ACETAMINOPHEN [Concomitant]
  14. BACTRIM [Concomitant]
  15. NEORECORMON (EPOETIN BETA) [Concomitant]
  16. OMEPRAZOLE [Concomitant]
  17. ALUMINUM HYDROXIDE AND MAGNESIUM TRISILICATE [Concomitant]
  18. ATARAX [Concomitant]
  19. KETOPROFEN [Concomitant]
  20. LEXOMIL (BROMAZEPAM) [Concomitant]
  21. CACIT (CACIT) [Concomitant]
  22. ZOMETA [Concomitant]
  23. MAGNE B6 (DYNAMAG) (TABLETS) [Concomitant]

REACTIONS (4)
  - BRONCHITIS [None]
  - RENAL FAILURE ACUTE [None]
  - SYSTEMIC INFLAMMATORY RESPONSE SYNDROME [None]
  - THROMBOCYTOPENIA [None]
